FAERS Safety Report 18877358 (Version 1)
Quarter: 2021Q1

REPORT INFORMATION
  Report Type: Spontaneous
  Country: MY (occurrence: MY)
  Receive Date: 20210211
  Receipt Date: 20210211
  Transmission Date: 20210420
  Serious: Yes (Other)
  Sender: FDA-Public Use
  Company Number: MY-DRREDDYS-GPV/MLY/21/0131780

PATIENT
  Age: 43 Year
  Sex: Female

DRUGS (3)
  1. DOXLOX (DOXORUBICIN) [Suspect]
     Active Substance: DOXORUBICIN
     Indication: OVARIAN CANCER
     Dosage: THERAPY DURATION 10 MINUTES
     Route: 042
     Dates: start: 20210122
  2. ALOXI [Concomitant]
     Active Substance: PALONOSETRON HYDROCHLORIDE
     Indication: PRODUCT USED FOR UNKNOWN INDICATION
     Route: 042
  3. DSG [Concomitant]
     Indication: PRODUCT USED FOR UNKNOWN INDICATION
     Route: 042

REACTIONS (4)
  - Dyspnoea [Unknown]
  - Vomiting [Unknown]
  - Chest discomfort [Unknown]
  - Hyperhidrosis [Unknown]
